FAERS Safety Report 6724584-3 (Version None)
Quarter: 2010Q2

REPORT INFORMATION
  Report Type: 
  Country: None (occurrence: None)
  Receive Date: 20100513
  Receipt Date: 20100426
  Transmission Date: 20101027
  Serious: Yes (Life-Threatening, Hospitalization, Disabling, Other)
  Sender: FDA-Public Use
  Company Number: PHHY2009JP28202

PATIENT
  Age: 48 Year
  Sex: Male

DRUGS (13)
  1. SIMULECT [Suspect]
     Indication: RENAL TRANSPLANT
     Dosage: 20 MG
  2. SIMULECT [Suspect]
     Indication: IMMUNOSUPPRESSION
  3. NEORAL [Suspect]
     Indication: RENAL TRANSPLANT
     Dosage: UNK
     Dates: end: 20051114
  4. MYCOPHENOLATE MOFETIL [Suspect]
     Indication: RENAL TRANSPLANT
     Dosage: 2000 MG/DAY
     Dates: start: 20050902
  5. MYCOPHENOLATE MOFETIL [Suspect]
     Indication: IMMUNOSUPPRESSION
     Dosage: 1500 MG/DAY
     Dates: start: 20050101, end: 20050101
  6. MYCOPHENOLATE MOFETIL [Suspect]
     Dosage: 1000 MG/DAY
     Dates: start: 20050101, end: 20051020
  7. METHYLPREDNISOLONE 4MG TAB [Concomitant]
     Indication: RENAL TRANSPLANT
     Dosage: 250 MG
     Dates: start: 20051022
  8. METHYLPREDNISOLONE 4MG TAB [Concomitant]
     Indication: IMMUNOSUPPRESSION
     Dosage: 125 MG
  9. METHYLPREDNISOLONE 4MG TAB [Concomitant]
     Indication: KIDNEY TRANSPLANT REJECTION
  10. GUSPERIMUS HYDROCHLORIDE [Concomitant]
     Indication: KIDNEY TRANSPLANT REJECTION
     Dosage: 250 MG, UNK
     Dates: start: 20051016, end: 20051220
  11. TACROLIMUS [Concomitant]
     Indication: RENAL TRANSPLANT
     Dosage: UNK
     Dates: start: 20051022
  12. AZATHIOPRINE [Concomitant]
     Indication: ANTIVIRAL PROPHYLAXIS
     Dosage: 50 MG, UNK
     Dates: start: 20051116
  13. AZATHIOPRINE [Concomitant]
     Indication: RENAL TRANSPLANT

REACTIONS (12)
  - BK VIRUS INFECTION [None]
  - CHRONIC ALLOGRAFT NEPHROPATHY [None]
  - HYDRONEPHROSIS [None]
  - HYPERKALAEMIA [None]
  - KIDNEY TRANSPLANT REJECTION [None]
  - NEPHROSTOMY [None]
  - PANCYTOPENIA [None]
  - PYREXIA [None]
  - RECTAL HAEMORRHAGE [None]
  - RENAL IMPAIRMENT [None]
  - URETERIC OBSTRUCTION [None]
  - URETERITIS [None]
